FAERS Safety Report 4957080-4 (Version None)
Quarter: 2006Q1

REPORT INFORMATION
  Report Type: 
  Country: None (occurrence: None)
  Receive Date: 20060323
  Receipt Date: 20060310
  Transmission Date: 20060701
  Serious: Yes (Hospitalization, Disabling)
  Sender: FDA-Public Use
  Company Number: 2006035334

PATIENT
  Sex: Female
  Weight: 72.5755 kg

DRUGS (2)
  1. NAVANE [Suspect]
     Indication: DEPRESSION
     Dosage: 2 MG (2 MG, QD INTERVAL: EVERY DAY)
  2. ANTIHISTAMINES [Concomitant]

REACTIONS (6)
  - BLOOD CHOLESTEROL INCREASED [None]
  - BLOOD TRIGLYCERIDES INCREASED [None]
  - CONDITION AGGRAVATED [None]
  - DEPRESSION [None]
  - INCOHERENT [None]
  - TRANCE [None]
